FAERS Safety Report 9552849 (Version 1)
Quarter: 2013Q3

REPORT INFORMATION
  Report Type: Not Available
  Country: IT (occurrence: IT)
  Receive Date: 20130925
  Receipt Date: 20130925
  Transmission Date: 20140515
  Serious: Yes (Hospitalization)
  Sender: FDA-Public Use
  Company Number: IT-NAPPMUNDI-GBR-2013-0015759

PATIENT
  Age: 66 Year
  Sex: Female

DRUGS (11)
  1. OXYCONTIN 5 MG COMPRESSE A RILASCIO PROLUNGATO [Suspect]
     Indication: PAIN
     Dosage: 20 MG, DAILY
     Route: 048
     Dates: start: 20120502, end: 20120624
  2. OMEPRAZEN                          /00661201/ [Concomitant]
     Dosage: 50 MCG, UNK
     Route: 048
  3. CARDICOR [Concomitant]
     Dosage: 2.5 MG, UNK
     Route: 048
  4. LASIX                              /00032601/ [Concomitant]
     Dosage: 25 MG, UNK
     Route: 048
  5. ZANEDIP [Concomitant]
     Dosage: 10 MG, UNK
     Route: 048
  6. CARDIOASPIRIN [Concomitant]
  7. TOTALIP [Concomitant]
     Dosage: 20 MG, UNK
     Route: 048
  8. XELODA [Concomitant]
     Dosage: 500 MG, UNK
     Route: 048
  9. DIFLUCAN [Concomitant]
  10. HUMALOG [Concomitant]
  11. LANTUS [Concomitant]

REACTIONS (1)
  - Hepatitis acute [Unknown]
